FAERS Safety Report 5946058-X (Version None)
Quarter: 2008Q4

REPORT INFORMATION
  Report Type: 
  Country: None (occurrence: None)
  Receive Date: 20081110
  Receipt Date: 20081028
  Transmission Date: 20090506
  Serious: Yes (Other)
  Sender: FDA-Public Use
  Company Number: DE-ELI_LILLY_AND_COMPANY-DE200807003100

PATIENT
  Sex: Male
  Weight: 106 kg

DRUGS (8)
  1. SOMATROPIN [Suspect]
     Indication: PITUITARY TUMOUR
     Dosage: 0.2 MG, DAILY (1/D)
     Route: 065
     Dates: start: 20041007, end: 20060627
  2. JODTHYROX [Concomitant]
     Dosage: 100 UNK, EACH MORNING
     Dates: start: 19920101
  3. ENALAPRIL MALEATE [Concomitant]
     Indication: HYPERTENSION
     Dosage: 10 MG, 2/D
     Route: 065
  4. CITALOPRAM HYDROBROMIDE [Concomitant]
     Dosage: 10 UNK, UNK
     Route: 065
  5. CETIRIZIN [Concomitant]
     Indication: ANTIALLERGIC THERAPY
     Dosage: 10 MG, EACH MORNING
     Route: 065
  6. NOVORAPID [Concomitant]
  7. OMEP [Concomitant]
     Dosage: 20 MG, EACH EVENING
     Route: 065
  8. PROTAPHANE [Concomitant]
     Dosage: 10 UNK, UNK

REACTIONS (1)
  - PROSTATE CANCER [None]
